FAERS Safety Report 10372175 (Version 1)
Quarter: 2014Q3

REPORT INFORMATION
  Report Type: Spontaneous
  Country: US (occurrence: US)
  Receive Date: 20140808
  Receipt Date: 20140808
  Transmission Date: 20150326
  Serious: No
  Sender: FDA-Public Use
  Company Number: US-BRISTOL-MYERS SQUIBB COMPANY-20674016

PATIENT
  Age: 51 Year
  Sex: Female

DRUGS (1)
  1. SPRYCEL [Suspect]
     Active Substance: DASATINIB
     Indication: CHRONIC MYELOID LEUKAEMIA
     Dosage: 1DF:70MG/140MG(ALTERNATED).
     Dates: start: 201303

REACTIONS (7)
  - Body temperature fluctuation [Unknown]
  - Pain [Unknown]
  - Pruritus generalised [Unknown]
  - Fatigue [Unknown]
  - Abdominal pain [Unknown]
  - Nausea [Unknown]
  - Rash [Unknown]
